FAERS Safety Report 8420279-9 (Version None)
Quarter: 2012Q2

REPORT INFORMATION
  Report Type: 
  Country: None (occurrence: None)
  Receive Date: 20120607
  Receipt Date: 20120524
  Transmission Date: 20120825
  Serious: Yes (Death, Hospitalization, Disabling, Other)
  Sender: FDA-Public Use
  Company Number: US-MYLANLABS-2009AC000385

PATIENT
  Age: 50 Year
  Sex: Male
  Weight: 69.85 kg

DRUGS (73)
  1. VASOTEC [Concomitant]
  2. ISMO [Concomitant]
  3. LASIX [Concomitant]
  4. CHANTIX [Concomitant]
  5. LORTAB [Concomitant]
  6. MEDROL [Concomitant]
  7. GYNOVIN /00062801/ [Concomitant]
  8. PACERONE [Concomitant]
  9. ETOPOSIDE [Concomitant]
  10. BAYCOL [Concomitant]
  11. QUINIDEX [Concomitant]
  12. COREG [Concomitant]
  13. PRILOSEC [Concomitant]
  14. ADVAIR DISKUS 100/50 [Concomitant]
     Dosage: 250/50 BID
  15. METOLAZONE [Concomitant]
  16. HYDROCODONE [Concomitant]
  17. PROCHLORPERAZINE [Concomitant]
  18. LEVOTHYROXINE SODIUM [Concomitant]
  19. FLOMAX [Concomitant]
  20. COUMADIN [Concomitant]
  21. ISOSORBIDE DINITRATE [Concomitant]
  22. XANAX [Concomitant]
  23. CARISOPRODOL [Concomitant]
  24. LEVOTHYROXINE SODIUM [Concomitant]
  25. COMBIVENT [Concomitant]
  26. CEFDINIR [Concomitant]
  27. BETA CARDONE [Concomitant]
  28. DUONEB [Concomitant]
  29. GLUCOVANCE [Concomitant]
  30. POTASSIUM CHLORIDE [Concomitant]
  31. ASPIRIN [Concomitant]
  32. SIMVASTATIN [Concomitant]
  33. ZOCOR [Concomitant]
  34. PROMETHAZINE [Concomitant]
  35. DOXYCYCLINE [Concomitant]
  36. ASPIRIN [Concomitant]
  37. CAPOTEN [Concomitant]
  38. MIRALAX /00754501/ [Concomitant]
  39. NITROGLYCERIN [Concomitant]
  40. METFORMIN HCL [Concomitant]
     Dosage: 5/500
  41. CAPTOPRIL [Concomitant]
  42. SOMA [Concomitant]
  43. GLYBURIDE [Concomitant]
  44. SYNTHROID [Concomitant]
  45. KAY CIEL DURA-TABS [Concomitant]
  46. POTASSIUM CHLORIDE [Concomitant]
  47. OMNICEF /00497602/ [Concomitant]
  48. NITROGLYCERIN [Concomitant]
  49. FUROSEMIDE [Concomitant]
  50. VASOTEC [Concomitant]
  51. ZANTAC [Concomitant]
  52. DIGOXIN [Suspect]
     Indication: PRODUCT USED FOR UNKNOWN INDICATION
     Route: 048
     Dates: start: 19940220, end: 20080618
  53. ZOCOR [Concomitant]
  54. ISORDIL [Concomitant]
  55. NIZORAL [Concomitant]
     Dosage: TABLETS AND CREAM X24
  56. AMARYL [Concomitant]
  57. PREDNISONE [Concomitant]
  58. GLUCOVANCE [Concomitant]
  59. LANTUS [Concomitant]
  60. ACTOS [Concomitant]
  61. NOVOLIN R [Concomitant]
  62. ZOLPIDEM [Concomitant]
  63. METHYLPREDNISOLONE [Concomitant]
  64. VIBRAMYCIN [Concomitant]
  65. ZAROXOLYN [Concomitant]
  66. SPIRIVA [Concomitant]
  67. JANUVIA [Concomitant]
  68. AMIODARONE HCL [Concomitant]
  69. ALBUTEROL [Concomitant]
  70. CELEBREX [Concomitant]
  71. AMBIEN [Concomitant]
  72. SURFAK [Concomitant]
  73. CELEBREX [Concomitant]

REACTIONS (138)
  - INJURY [None]
  - PERICARDITIS [None]
  - CEREBROVASCULAR ACCIDENT [None]
  - ANGINA PECTORIS [None]
  - BUNDLE BRANCH BLOCK [None]
  - DIABETES MELLITUS INADEQUATE CONTROL [None]
  - LUNG SQUAMOUS CELL CARCINOMA STAGE III [None]
  - UPPER GASTROINTESTINAL HAEMORRHAGE [None]
  - ECHOCARDIOGRAM ABNORMAL [None]
  - FATIGUE [None]
  - HYPERCHOLESTEROLAEMIA [None]
  - NAUSEA [None]
  - PALLOR [None]
  - RASH ERYTHEMATOUS [None]
  - GAIT DISTURBANCE [None]
  - PERIPHERAL VASCULAR DISORDER [None]
  - CARDIOMYOPATHY [None]
  - HYPERGLYCAEMIA [None]
  - HYPOGLYCAEMIA [None]
  - ARTERIAL BYPASS OPERATION [None]
  - BRONCHITIS [None]
  - CHRONIC OBSTRUCTIVE PULMONARY DISEASE [None]
  - EMOTIONAL DISTRESS [None]
  - GENERAL PHYSICAL HEALTH DETERIORATION [None]
  - HYPOTENSION [None]
  - LABORATORY TEST ABNORMAL [None]
  - POSITRON EMISSION TOMOGRAM ABNORMAL [None]
  - TREMOR [None]
  - CARDIAC FAILURE CONGESTIVE [None]
  - DIABETES MELLITUS [None]
  - PULMONARY HILUM MASS [None]
  - HYPERTENSION [None]
  - IMPAIRED WORK ABILITY [None]
  - EMBOLIC STROKE [None]
  - HAEMOGLOBIN DECREASED [None]
  - PULMONARY OEDEMA [None]
  - ABDOMINAL PAIN [None]
  - ACTIVITIES OF DAILY LIVING IMPAIRED [None]
  - CARDIAC MURMUR [None]
  - CARDIOMEGALY [None]
  - COUGH [None]
  - ELECTROCARDIOGRAM ABNORMAL [None]
  - HUNGER [None]
  - HYPOTHYROIDISM [None]
  - NECK PAIN [None]
  - NUCLEAR MAGNETIC RESONANCE IMAGING ABNORMAL [None]
  - VENTRICULAR EXTRASYSTOLES [None]
  - ATRIAL FLUTTER [None]
  - SPEECH DISORDER [None]
  - ATRIAL FIBRILLATION [None]
  - PLEURAL EFFUSION [None]
  - HEMIPARESIS [None]
  - APHASIA [None]
  - CEREBRAL ARTERY EMBOLISM [None]
  - HYPOVOLAEMIA [None]
  - RECTAL HAEMORRHAGE [None]
  - RENAL FAILURE ACUTE [None]
  - BENIGN PROSTATIC HYPERPLASIA [None]
  - CARDIAC FLUTTER [None]
  - DRY MOUTH [None]
  - HYPERHIDROSIS [None]
  - MYOPATHY [None]
  - ORTHOPNOEA [None]
  - RADIOTHERAPY [None]
  - RASH PAPULAR [None]
  - TACHYCARDIA [None]
  - WHEEZING [None]
  - ECONOMIC PROBLEM [None]
  - PULSE ABSENT [None]
  - BLOOD PRESSURE INCREASED [None]
  - AORTIC BYPASS [None]
  - HAEMATEMESIS [None]
  - ANAEMIA [None]
  - HAEMORRHAGIC ANAEMIA [None]
  - ACUTE PRERENAL FAILURE [None]
  - ANXIETY [None]
  - BODY TINEA [None]
  - CARDIAC STRESS TEST ABNORMAL [None]
  - CARDIOACTIVE DRUG LEVEL INCREASED [None]
  - CHEST X-RAY ABNORMAL [None]
  - DECREASED APPETITE [None]
  - DUODENITIS [None]
  - INTERMITTENT CLAUDICATION [None]
  - MUSCLE ATROPHY [None]
  - PRODUCTIVE COUGH [None]
  - SYNOVITIS [None]
  - URINE OUTPUT DECREASED [None]
  - ILL-DEFINED DISORDER [None]
  - DEATH [None]
  - CHEST PAIN [None]
  - BLOOD GLUCOSE DECREASED [None]
  - GASTROINTESTINAL HAEMORRHAGE [None]
  - ARTERIOSCLEROSIS [None]
  - LUNG NEOPLASM MALIGNANT [None]
  - ARTHRALGIA [None]
  - DEPRESSION [None]
  - FLUID OVERLOAD [None]
  - HEART RATE IRREGULAR [None]
  - ILIAC ARTERY STENOSIS [None]
  - PULMONARY MASS [None]
  - UNRESPONSIVE TO STIMULI [None]
  - MYOCARDIAL INFARCTION [None]
  - LETHARGY [None]
  - OEDEMA PERIPHERAL [None]
  - ALOPECIA [None]
  - DRUG THERAPY [None]
  - ALCOHOL ABUSE [None]
  - LEFT VENTRICULAR DYSFUNCTION [None]
  - TRANSFUSION [None]
  - ACQUIRED PHIMOSIS [None]
  - CHEST DISCOMFORT [None]
  - CONSTIPATION [None]
  - DUODENAL ULCER [None]
  - HYPONATRAEMIA [None]
  - MUSCULOSKELETAL STIFFNESS [None]
  - RALES [None]
  - URINARY RETENTION [None]
  - VOMITING [None]
  - DYSPNOEA [None]
  - TOXICITY TO VARIOUS AGENTS [None]
  - ANGIOPLASTY [None]
  - TOBACCO USER [None]
  - CARDIAC VALVE DISEASE [None]
  - PLEURISY [None]
  - ABDOMINAL DISTENSION [None]
  - ASTHENIA [None]
  - CHEMOTHERAPY [None]
  - CHILLS [None]
  - DIARRHOEA [None]
  - DIZZINESS [None]
  - DYSARTHRIA [None]
  - FUNGAL SKIN INFECTION [None]
  - HAEMATOCHEZIA [None]
  - HOSPICE CARE [None]
  - NEUTROPENIA [None]
  - PULMONARY FUNCTION TEST ABNORMAL [None]
  - SINUS TACHYCARDIA [None]
  - TOBACCO ABUSE [None]
